FAERS Safety Report 14292694 (Version 1)
Quarter: 2017Q4

REPORT INFORMATION
  Report Type: Spontaneous
  Country: US (occurrence: US)
  Receive Date: 20171215
  Receipt Date: 20171215
  Transmission Date: 20180321
  Serious: No
  Sender: FDA-Public Use
  Company Number: US-PERRIGO-17US003186

PATIENT
  Sex: Female

DRUGS (1)
  1. GUAIFENESIN. [Suspect]
     Active Substance: GUAIFENESIN
     Indication: SINUS CONGESTION
     Dosage: UNKNOWN, UNKNOWN
     Route: 048
     Dates: start: 20170410, end: 20170410

REACTIONS (2)
  - Drug ineffective for unapproved indication [Unknown]
  - Expired product administered [Recovered/Resolved]

NARRATIVE: CASE EVENT DATE: 20170410
